FAERS Safety Report 18260014 (Version 1)
Quarter: 2020Q3

REPORT INFORMATION
  Report Type: Spontaneous
  Country: HK (occurrence: HK)
  Receive Date: 20200913
  Receipt Date: 20200913
  Transmission Date: 20201103
  Serious: Yes (Hospitalization, Other)
  Sender: FDA-Public Use
  Company Number: HK-AMGEN-HKGSP2020145120

PATIENT
  Age: 67 Year
  Sex: Female
  Weight: 48.3 kg

DRUGS (4)
  1. ALDACTONE [Concomitant]
     Active Substance: SPIRONOLACTONE
     Dosage: 25 MILLIGRAM
     Route: 048
     Dates: start: 2020
  2. PROLIA [Suspect]
     Active Substance: DENOSUMAB
     Indication: PRODUCT USED FOR UNKNOWN INDICATION
     Dosage: UNK, Q6MO
     Route: 065
     Dates: start: 20130618
  3. WARFARIN SODIUM. [Concomitant]
     Active Substance: WARFARIN SODIUM
     Dosage: 2.5 MILLIGRAM, QD
     Route: 048
     Dates: start: 2020
  4. SLOW K [Concomitant]
     Active Substance: POTASSIUM CHLORIDE
     Dosage: UNK
     Dates: start: 2020

REACTIONS (9)
  - Atelectasis [Unknown]
  - Hiatus hernia [Unknown]
  - Hypertension [Unknown]
  - Gastritis [Unknown]
  - Atrial fibrillation [Unknown]
  - Oesophageal disorder [Unknown]
  - Aortic valve replacement [Unknown]
  - Mitral valve replacement [Unknown]
  - Tricuspid valve repair [Unknown]

NARRATIVE: CASE EVENT DATE: 2018
